FAERS Safety Report 8619682 (Version 4)
Quarter: 2012Q4

REPORT INFORMATION
  Report Type: Report from Study
  Country: DE (occurrence: DE)
  Receive Date: 20120618
  Receipt Date: 20121015
  Transmission Date: 20130627
  Serious: Yes (Other)
  Sender: FDA-Public Use
  Company Number: DE-UCBSA-059495

PATIENT
  Sex: Female

DRUGS (17)
  1. CIMZIA [Suspect]
     Indication: RHEUMATOID ARTHRITIS
     Dates: start: 20100209
  2. PREDNISOLON [Concomitant]
     Indication: RHEUMATOID ARTHRITIS
     Dates: start: 20100206, end: 20100210
  3. PREDNISOLON [Concomitant]
     Indication: RHEUMATOID ARTHRITIS
     Dates: start: 20100211, end: 20100215
  4. PREDNISOLON [Concomitant]
     Indication: RHEUMATOID ARTHRITIS
     Dates: start: 20100216, end: 20100220
  5. PREDNISOLON [Concomitant]
     Indication: RHEUMATOID ARTHRITIS
     Dates: start: 20100221, end: 20100225
  6. PREDNISOLON [Concomitant]
     Indication: RHEUMATOID ARTHRITIS
     Dates: start: 20100226, end: 20100302
  7. PREDNISOLON [Concomitant]
     Indication: RHEUMATOID ARTHRITIS
     Dates: start: 20100303, end: 20120215
  8. PREDNISOLON [Concomitant]
     Indication: RHEUMATOID ARTHRITIS
     Dates: start: 20120216
  9. METHOTREXATE [Concomitant]
     Indication: RHEUMATOID ARTHRITIS
     Dosage: A SUFFICIENT QUANTITY
     Dates: start: 20091216, end: 20100914
  10. METHOTREXATE [Concomitant]
     Indication: RHEUMATOID ARTHRITIS
     Dosage: A SUFFICIENT QUANTITY
     Dates: start: 200909
  11. FOLSAN [Concomitant]
     Indication: PROPHYLAXIS
     Dosage: FREQUENCY:TIS
     Dates: start: 20091216
  12. ALENDRONATE [Concomitant]
     Indication: OSTEOPOROSIS
     Dosage: A SUFFICIENT QUANTITY
     Dates: start: 20090603
  13. PREGABALIN [Concomitant]
     Indication: PAIN
     Dates: start: 20080526
  14. PANTOPRAZOLE [Concomitant]
     Indication: GASTRITIS PROPHYLAXIS
     Dates: start: 20090603
  15. METAMIZOL [Concomitant]
     Indication: PAIN
     Dates: start: 2009
  16. IDEOS [Concomitant]
     Indication: OSTEOPENIA
     Dates: start: 200805
  17. INSULIN [Concomitant]
     Indication: DIABETES MELLITUS
     Dosage: 20 I.E.
     Route: 058
     Dates: start: 20120101

REACTIONS (1)
  - Diabetes mellitus [Not Recovered/Not Resolved]
